FAERS Safety Report 16598862 (Version 2)
Quarter: 2021Q1

REPORT INFORMATION
  Report Type: Spontaneous
  Country: US (occurrence: US)
  Receive Date: 20190719
  Receipt Date: 20210305
  Transmission Date: 20210419
  Serious: No
  Sender: FDA-Public Use
  Company Number: US-SA-2019SA195730

PATIENT
  Age: 85 Year
  Sex: Male

DRUGS (1)
  1. ELITEK [Suspect]
     Active Substance: RASBURICASE

REACTIONS (2)
  - Respiratory disorder [Unknown]
  - Cardiovascular disorder [Unknown]
